FAERS Safety Report 22224955 (Version 1)
Quarter: 2023Q2

REPORT INFORMATION
  Report Type: Spontaneous
  Country: JP (occurrence: JP)
  Receive Date: 20230418
  Receipt Date: 20230418
  Transmission Date: 20230722
  Serious: Yes (Hospitalization)
  Sender: FDA-Public Use
  Company Number: JP-002147023-NVSC2023JP088271

PATIENT
  Age: 50 Year
  Sex: Female

DRUGS (2)
  1. DIFLUPREDNATE [Suspect]
     Active Substance: DIFLUPREDNATE
     Indication: Erythema
     Dosage: UNK
     Route: 003
  2. PREDNISOLONE [Suspect]
     Active Substance: PREDNISOLONE
     Indication: Erythema
     Dosage: 25 MG
     Route: 048

REACTIONS (1)
  - Tinea infection [Recovering/Resolving]
